FAERS Safety Report 8310601-6 (Version None)
Quarter: 2012Q2

REPORT INFORMATION
  Report Type: 
  Country: None (occurrence: None)
  Receive Date: 20120425
  Receipt Date: 20120425
  Transmission Date: 20120825
  Serious: Yes (Hospitalization)
  Sender: FDA-Public Use
  Company Number: None

PATIENT
  Sex: Female
  Weight: 470.82 kg

DRUGS (1)
  1. ROMIDEPSIN [Suspect]
     Indication: LYMPHOMA
     Dosage: 10MG -DECREASED FOR TOXICITY-
     Route: 042
     Dates: start: 20111021, end: 20120309

REACTIONS (2)
  - PULMONARY EOSINOPHILIA [None]
  - PNEUMONITIS [None]
